FAERS Safety Report 6686986-3 (Version None)
Quarter: 2010Q2

REPORT INFORMATION
  Report Type: 
  Country: None (occurrence: None)
  Receive Date: 20100419
  Receipt Date: 20100408
  Transmission Date: 20101027
  Serious: Yes (Other)
  Sender: FDA-Public Use
  Company Number: GB-PFIZER INC-2010044888

PATIENT
  Age: 65 Year
  Sex: Female

DRUGS (2)
  1. XALATAN [Suspect]
     Indication: GLAUCOMA
     Dosage: UNK
     Dates: start: 20100309
  2. XALACOM [Suspect]
     Indication: GLAUCOMA
     Dosage: UNK
     Dates: start: 20100331

REACTIONS (3)
  - ASTHENOPIA [None]
  - INTRAOCULAR PRESSURE INCREASED [None]
  - SKIN DISORDER [None]
